FAERS Safety Report 9665393 (Version 1)
Quarter: 2013Q4

REPORT INFORMATION
  Report Type: Spontaneous
  Country: CN (occurrence: CN)
  Receive Date: 20131104
  Receipt Date: 20131104
  Transmission Date: 20140711
  Serious: Yes (Death, Other)
  Sender: FDA-Public Use
  Company Number: CN-ROCHE-1295388

PATIENT
  Sex: Male

DRUGS (1)
  1. CEFTRIAXONE SODIUM [Suspect]
     Indication: INFECTION
     Route: 041
     Dates: start: 20130226

REACTIONS (4)
  - Palpitations [Unknown]
  - Vomiting [Unknown]
  - Coma [Unknown]
  - Death [Fatal]
